FAERS Safety Report 18747449 (Version 1)
Quarter: 2021Q1

REPORT INFORMATION
  Report Type: Spontaneous
  Country: DK (occurrence: DK)
  Receive Date: 20210115
  Receipt Date: 20210115
  Transmission Date: 20210419
  Serious: Yes (Other)
  Sender: FDA-Public Use
  Company Number: DK-GALDERMA-DK2021000612

PATIENT
  Age: 25 Year
  Sex: Male

DRUGS (15)
  1. DOXYCYCLINE. [Suspect]
     Active Substance: DOXYCYCLINE
     Indication: HIDRADENITIS
     Route: 065
  2. METRONIDAZOLE. [Concomitant]
     Active Substance: METRONIDAZOLE
     Indication: HIDRADENITIS
     Route: 065
  3. GUSELKUMAB [Concomitant]
     Active Substance: GUSELKUMAB
     Indication: HIDRADENITIS
     Dosage: 100 MILLIGRAM AT WEEK 0
     Route: 058
     Dates: start: 201904
  4. CLINDAMYCIN. [Concomitant]
     Active Substance: CLINDAMYCIN
     Indication: HIDRADENITIS
     Route: 065
  5. TETRACYCLINE [Concomitant]
     Active Substance: TETRACYCLINE
     Indication: HIDRADENITIS
     Route: 065
  6. CIPROFLOXACINE [Concomitant]
     Active Substance: CIPROFLOXACIN
     Indication: HIDRADENITIS
     Route: 065
  7. USTEKINUMAB [Concomitant]
     Active Substance: USTEKINUMAB
     Indication: HIDRADENITIS
     Route: 065
  8. GUSELKUMAB [Concomitant]
     Active Substance: GUSELKUMAB
     Dosage: MAINTENANCE DOSE (100MG EVERY 8 WEEKS)
     Route: 058
  9. ADALIMUMAB [Concomitant]
     Active Substance: ADALIMUMAB
     Indication: HIDRADENITIS
     Route: 065
  10. GUSELKUMAB [Concomitant]
     Active Substance: GUSELKUMAB
     Dosage: 100 MG AT WEEK 4
     Route: 058
  11. DICLOXACILLINE [Concomitant]
     Active Substance: DICLOXACILLIN
     Indication: HIDRADENITIS
     Route: 065
  12. AZATHIOPRINE. [Concomitant]
     Active Substance: AZATHIOPRINE
     Indication: HIDRADENITIS
     Route: 065
  13. RIFAMPICIN [Concomitant]
     Active Substance: RIFAMPIN
     Indication: HIDRADENITIS
     Route: 065
  14. PENICILLINE [Concomitant]
     Active Substance: PENICILLIN G
     Indication: HIDRADENITIS
     Route: 065
  15. GUSELKUMAB [Concomitant]
     Active Substance: GUSELKUMAB
     Dosage: 100MG EVERY 6 WEEKS
     Route: 058

REACTIONS (6)
  - Abdominal pain [Unknown]
  - Intentional product use issue [Recovered/Resolved]
  - Hidradenitis [Recovering/Resolving]
  - Pyrexia [Unknown]
  - Condition aggravated [Recovering/Resolving]
  - Drug ineffective for unapproved indication [Recovered/Resolved]
